FAERS Safety Report 9983841 (Version 1)
Quarter: 2014Q1

REPORT INFORMATION
  Report Type: Spontaneous
  Country: DE (occurrence: DE)
  Receive Date: 20140307
  Receipt Date: 20140307
  Transmission Date: 20141002
  Serious: Yes (Other)
  Sender: FDA-Public Use
  Company Number: DE-ASTRAZENECA-2014SE14553

PATIENT
  Age: 30 Month
  Sex: Female
  Weight: 9 kg

DRUGS (5)
  1. PROPOFOL [Suspect]
     Indication: RADIOISOTOPE SCAN
     Route: 042
     Dates: start: 20120921, end: 20120921
  2. ANTRA MUPS [Concomitant]
     Indication: GASTROOESOPHAGEAL REFLUX DISEASE
     Route: 048
     Dates: start: 201109
  3. FERRUM HAUSMANN [Concomitant]
     Indication: IRON DEFICIENCY
     Route: 048
     Dates: start: 201204
  4. L-THYROXIN [Concomitant]
     Indication: HYPERTHYROIDISM
     Route: 048
     Dates: start: 201204
  5. CEFACLOR [Concomitant]
     Indication: ANTIBIOTIC PROPHYLAXIS
     Route: 048
     Dates: start: 20120920, end: 20120922

REACTIONS (1)
  - Oxygen saturation decreased [Recovered/Resolved]
